FAERS Safety Report 13103723 (Version 2)
Quarter: 2017Q1

REPORT INFORMATION
  Report Type: Report from Study
  Country: CN (occurrence: CN)
  Receive Date: 20170111
  Receipt Date: 20170120
  Transmission Date: 20170428
  Serious: Yes (Hospitalization)
  Sender: FDA-Public Use
  Company Number: CN-ASTRAZENECA-2017SE02085

PATIENT
  Age: 26200 Day
  Sex: Female
  Weight: 75.5 kg

DRUGS (13)
  1. BYETTA [Suspect]
     Active Substance: EXENATIDE
     Indication: TYPE 2 DIABETES MELLITUS
     Route: 065
     Dates: start: 20161223, end: 20161224
  2. AMOXICILLIN. [Concomitant]
     Active Substance: AMOXICILLIN
     Indication: ANTACID THERAPY
     Route: 048
     Dates: start: 20161214, end: 20161224
  3. ROSUVASTATIN. [Concomitant]
     Active Substance: ROSUVASTATIN
     Indication: ARTERIOSCLEROSIS
     Route: 048
     Dates: start: 20161214, end: 20161224
  4. COLLOIDAL PECTIN BISMUTH [Concomitant]
     Indication: ANTACID THERAPY
     Route: 048
     Dates: start: 20161214, end: 20161224
  5. OMEPRAZOLE. [Concomitant]
     Active Substance: OMEPRAZOLE
     Indication: ANTACID THERAPY
     Route: 048
     Dates: start: 20161214, end: 20161224
  6. LARATADINE [Concomitant]
     Indication: DERMATITIS ALLERGIC
     Route: 048
     Dates: start: 20161224, end: 20161226
  7. STUDY PROCEDURE [Suspect]
     Active Substance: INVESTIGATIONAL PRODUCT
     Indication: TYPE 2 DIABETES MELLITUS
     Route: 065
  8. METOPROLOL. [Concomitant]
     Active Substance: METOPROLOL
     Indication: HYPERTENSION
     Route: 048
     Dates: start: 20161214, end: 20161224
  9. DOMPERIDONE [Concomitant]
     Active Substance: DOMPERIDONE
     Indication: ANTACID THERAPY
     Route: 048
     Dates: start: 20161214, end: 20161224
  10. TELMISARTAN. [Concomitant]
     Active Substance: TELMISARTAN
     Indication: BLOOD PRESSURE MEASUREMENT
     Route: 048
     Dates: start: 20161214, end: 20161224
  11. BYETTA [Suspect]
     Active Substance: EXENATIDE
     Indication: TYPE 2 DIABETES MELLITUS
     Route: 065
     Dates: start: 20170104, end: 20170104
  12. GLUCOPHAGE [Concomitant]
     Active Substance: METFORMIN HYDROCHLORIDE
     Indication: TYPE 2 DIABETES MELLITUS
     Route: 048
     Dates: start: 20090613, end: 20161224
  13. ASPIRIN. [Concomitant]
     Active Substance: ASPIRIN
     Indication: ANTIPLATELET THERAPY
     Route: 048
     Dates: start: 20161214, end: 20161224

REACTIONS (1)
  - Dermatitis allergic [Recovered/Resolved]

NARRATIVE: CASE EVENT DATE: 20161224
